FAERS Safety Report 4835188-1 (Version None)
Quarter: 2005Q4

REPORT INFORMATION
  Report Type: 
  Country: None (occurrence: None)
  Receive Date: 20051114
  Receipt Date: 20050613
  Transmission Date: 20060501
  Serious: Yes (Hospitalization)
  Sender: FDA-Public Use
  Company Number: 2005BH002752

PATIENT
  Age: 52 Year
  Sex: Female

DRUGS (1)
  1. DIANEAL [Suspect]
     Dosage: 6 L; IP
     Route: 034

REACTIONS (5)
  - GASTROINTESTINAL DISORDER [None]
  - PRURITUS [None]
  - PYREXIA [None]
  - RASH [None]
  - URINARY TRACT INFECTION [None]
